FAERS Safety Report 23679079 (Version 1)
Quarter: 2024Q1

REPORT INFORMATION
  Report Type: Spontaneous
  Country: US (occurrence: None)
  Receive Date: 20240327
  Receipt Date: 20240327
  Transmission Date: 20240410
  Serious: Yes (Hospitalization)
  Sender: FDA-Public Use
  Company Number: None

PATIENT
  Age: 30 Year
  Sex: Female
  Weight: 60.7 kg

DRUGS (1)
  1. GEMCITABINE HYDROCHLORIDE [Suspect]
     Active Substance: GEMCITABINE HYDROCHLORIDE
     Dates: end: 20240311

REACTIONS (7)
  - Vomiting [None]
  - Nasopharyngitis [None]
  - Human metapneumovirus test positive [None]
  - Respiratory failure [None]
  - Sepsis [None]
  - Liver function test increased [None]
  - Hypoxia [None]

NARRATIVE: CASE EVENT DATE: 20240313
